FAERS Safety Report 18305746 (Version 3)
Quarter: 2022Q1

REPORT INFORMATION
  Report Type: Spontaneous
  Country: US (occurrence: US)
  Receive Date: 20200923
  Receipt Date: 20220318
  Transmission Date: 20220423
  Serious: Yes (Other)
  Sender: FDA-Public Use
  Company Number: US-BIOMARINAP-US-2020-132361

PATIENT
  Age: 10 Year
  Sex: Female

DRUGS (3)
  1. LARONIDASE [Suspect]
     Active Substance: LARONIDASE
     Indication: Mucopolysaccharidosis I
     Dosage: 14.50 MG, QW
     Route: 042
     Dates: start: 20160118
  2. LARONIDASE [Suspect]
     Active Substance: LARONIDASE
     Dosage: 29 MILLIGRAM, QW
     Route: 042
     Dates: start: 20200813
  3. LARONIDASE [Suspect]
     Active Substance: LARONIDASE
     Dosage: 14.50 MG, QW
     Route: 042

REACTIONS (7)
  - Growth hormone deficiency [Unknown]
  - Swelling [Unknown]
  - Umbilical hernia [Unknown]
  - Cognitive disorder [Unknown]
  - Cerebral disorder [Unknown]
  - Growth disorder [Unknown]
  - Tracheostomy [Unknown]
